FAERS Safety Report 19946102 (Version 2)
Quarter: 2021Q4

REPORT INFORMATION
  Report Type: Spontaneous
  Country: GB (occurrence: GB)
  Receive Date: 20211012
  Receipt Date: 20211019
  Transmission Date: 20220303
  Serious: Yes (Disabling, Other)
  Sender: FDA-Public Use
  Company Number: None

PATIENT
  Age: 29 Year
  Sex: Female
  Weight: 67.2 kg

DRUGS (1)
  1. ONDANSETRON [Suspect]
     Active Substance: ONDANSETRON
     Indication: Hyperemesis gravidarum
     Dosage: 4 MILLIGRAM (4MG)
     Route: 048
     Dates: start: 20200906, end: 20200927

REACTIONS (3)
  - Foetal damage [Unknown]
  - Medication error [Unknown]
  - Maternal exposure during pregnancy [Unknown]
